FAERS Safety Report 8394952 (Version 3)
Quarter: 2012Q4

REPORT INFORMATION
  Report Type: 
  Country: US (occurrence: US)
  Receive Date: 20120208
  Receipt Date: 20120904
  Transmission Date: 20130627
  Serious: Yes (Hospitalization)
  Sender: FDA-Public Use
  Company Number: US-BAYER-2012-012253

PATIENT
  Age: 48 Year
  Sex: Female
  Weight: 81.63 kg

DRUGS (16)
  1. YASMIN [Suspect]
     Indication: HORMONE REPLACEMENT THERAPY
     Dosage: UNK
     Dates: start: 20050918, end: 20061024
  2. YASMIN [Suspect]
     Indication: HORMONE REPLACEMENT THERAPY
     Dosage: UNK
     Dates: start: 20071107
  3. YASMIN [Suspect]
     Indication: HORMONE REPLACEMENT THERAPY
     Dosage: UNK
     Dates: start: 20080409, end: 20080629
  4. OCELLA [Suspect]
     Indication: HORMONE REPLACEMENT THERAPY
     Dosage: UNK
     Dates: start: 20080727, end: 20100127
  5. VESICARE [Concomitant]
     Dosage: 5 mg, 1 tab daily
     Dates: start: 20091002
  6. AMITRIPTYLINE [Concomitant]
     Dosage: 10 mg, 2 tablets HS
     Route: 048
     Dates: start: 20091002
  7. ULTRAM ER [Concomitant]
     Dosage: 100 mg, 1 tablets daily
     Route: 048
     Dates: start: 20091009
  8. ABILIFY [Concomitant]
     Dosage: 2 mg, 2 tablets daily
     Route: 048
     Dates: start: 20091011
  9. HYDROCODONE W/APAP [Concomitant]
     Dosage: 5mg/500mg 1-2 tablets every 4 hours as needed
     Route: 048
     Dates: start: 20091014
  10. SOMA [Concomitant]
     Dosage: 250 mg, QID
     Route: 048
     Dates: start: 20091022
  11. LEXAPRO [Concomitant]
     Dosage: 20 mg, 1 tablet every day
     Route: 048
     Dates: start: 20091031
  12. FISH OIL [Concomitant]
     Indication: ARTHRALGIA
     Dosage: UNK
     Dates: start: 2003
  13. HERBAL PREPARATION [Concomitant]
     Dosage: UNK
  14. VICODIN [Concomitant]
     Indication: BACK PAIN
     Dosage: UNK
     Dates: start: 2002, end: 2012
  15. VICOPROFEN [Concomitant]
     Indication: BACK PAIN
     Dosage: UNK
     Dates: start: 2002, end: 2012
  16. DIURETICS [Concomitant]
     Dosage: UNK
     Dates: start: 2008

REACTIONS (9)
  - Pulmonary embolism [None]
  - Deep vein thrombosis [None]
  - Intracardiac thrombus [None]
  - Psychological trauma [None]
  - Pain [None]
  - Injury [None]
  - Dyspnoea [None]
  - Musculoskeletal chest pain [None]
  - Depression [None]
